FAERS Safety Report 5720057-5 (Version None)
Quarter: 2008Q2

REPORT INFORMATION
  Report Type: 
  Country: None (occurrence: None)
  Receive Date: 20080423
  Receipt Date: 20070913
  Transmission Date: 20081010
  Serious: Yes (Hospitalization)
  Sender: FDA-Public Use
  Company Number: 230111

PATIENT
  Age: 64 Year
  Sex: Female
  Weight: 54.4 kg

DRUGS (4)
  1. AVASTIN [Suspect]
     Indication: OVARIAN CANCER
     Dosage: 279.5 MG, Q2W, INTRAVENOUS
     Route: 042
     Dates: start: 20060301, end: 20060918
  2. ABRAXANE (PACLITAXEL PROTEIN-BOUND/ALBUMIN) [Concomitant]
  3. CARBOPLATIN [Concomitant]
  4. DOXIL [Concomitant]

REACTIONS (1)
  - CEREBROVASCULAR ACCIDENT [None]
